FAERS Safety Report 25221961 (Version 1)
Quarter: 2025Q2

REPORT INFORMATION
  Report Type: Spontaneous
  Country: US (occurrence: US)
  Receive Date: 20250421
  Receipt Date: 20250421
  Transmission Date: 20250716
  Serious: No
  Sender: PFIZER
  Company Number: US-PFIZER INC-202500078883

PATIENT

DRUGS (2)
  1. PALBOCICLIB [Suspect]
     Active Substance: PALBOCICLIB
     Indication: PIK3CA-activated mutation
  2. INAVOLISIB [Suspect]
     Active Substance: INAVOLISIB

REACTIONS (1)
  - Hyperglycaemia [Recovering/Resolving]
